APPROVED DRUG PRODUCT: ORPHENADRINE CITRATE, ASPIRIN, AND CAFFEINE
Active Ingredient: ASPIRIN; CAFFEINE; ORPHENADRINE CITRATE
Strength: 770MG;60MG;50MG
Dosage Form/Route: TABLET;ORAL
Application: A074654 | Product #002
Applicant: SANDOZ INC
Approved: Dec 31, 1996 | RLD: No | RS: No | Type: DISCN